FAERS Safety Report 17661861 (Version 2)
Quarter: 2020Q2

REPORT INFORMATION
  Report Type: Spontaneous
  Country: BE (occurrence: BE)
  Receive Date: 20200413
  Receipt Date: 20200422
  Transmission Date: 20200713
  Serious: Yes (Death, Hospitalization, Other)
  Sender: FDA-Public Use
  Company Number: BE-HIKMA PHARMACEUTICALS USA INC.-BE-H14001-20-51059

PATIENT
  Age: 7 Decade
  Sex: Female

DRUGS (2)
  1. CARBOPLATIN. [Suspect]
     Active Substance: CARBOPLATIN
     Indication: OESOPHAGEAL ADENOCARCINOMA
     Dosage: ()
     Route: 065
  2. PACLITAXEL. [Suspect]
     Active Substance: PACLITAXEL
     Indication: OESOPHAGEAL ADENOCARCINOMA
     Dosage: ()
     Route: 065

REACTIONS (15)
  - Hypercapnia [Fatal]
  - Pneumonia aspiration [Recovered/Resolved]
  - Intestinal anastomosis complication [Unknown]
  - Citrobacter infection [Recovered/Resolved]
  - Respiratory failure [Fatal]
  - Pleural effusion [Recovered/Resolved]
  - Gastric fistula [Fatal]
  - Pulmonary sepsis [Fatal]
  - Pulmonary hypertension [Fatal]
  - Bronchial fistula [Fatal]
  - Pulmonary embolism [Fatal]
  - Ischaemia [Recovered/Resolved]
  - Empyema [Fatal]
  - Respiratory acidosis [Fatal]
  - Atelectasis [Recovered/Resolved]
